FAERS Safety Report 24059027 (Version 2)
Quarter: 2024Q3

REPORT INFORMATION
  Report Type: Spontaneous
  Country: US (occurrence: US)
  Receive Date: 20240708
  Receipt Date: 20240805
  Transmission Date: 20241017
  Serious: Yes (Hospitalization)
  Sender: ABBVIE
  Company Number: US-ABBVIE-5825702

PATIENT
  Sex: Female

DRUGS (1)
  1. LINZESS [Suspect]
     Active Substance: LINACLOTIDE
     Indication: Product used for unknown indication
     Route: 048

REACTIONS (8)
  - Diarrhoea [Unknown]
  - Wrong technique in product usage process [Unknown]
  - Pain [Unknown]
  - Contusion [Unknown]
  - Abdominal pain upper [Unknown]
  - Drug ineffective [Unknown]
  - Constipation [Unknown]
  - Dysphagia [Unknown]
